FAERS Safety Report 25815903 (Version 1)
Quarter: 2025Q3

REPORT INFORMATION
  Report Type: Spontaneous
  Country: US (occurrence: US)
  Receive Date: 20250918
  Receipt Date: 20250918
  Transmission Date: 20251020
  Serious: Yes (Other)
  Sender: CATALYST PHARMA
  Company Number: US-CATALYSTPHARMACEUTICALPARTNERS-US-CATA-25-00890

PATIENT

DRUGS (3)
  1. FYCOMPA [Suspect]
     Active Substance: PERAMPANEL
     Indication: Seizure
     Route: 065
  2. FYCOMPA [Suspect]
     Active Substance: PERAMPANEL
     Route: 065
  3. FYCOMPA [Suspect]
     Active Substance: PERAMPANEL
     Route: 065

REACTIONS (7)
  - Suicidal ideation [Recovered/Resolved]
  - Amnesia [Recovered/Resolved]
  - Irritability [Unknown]
  - Mood swings [Unknown]
  - Anger [Unknown]
  - Fall [Unknown]
  - Back pain [Unknown]
